FAERS Safety Report 11681636 (Version 1)
Quarter: 2015Q4

REPORT INFORMATION
  Report Type: Spontaneous
  Country: US (occurrence: None)
  Receive Date: 20151028
  Receipt Date: 20151028
  Transmission Date: 20160304
  Serious: Yes (Other)
  Sender: FDA-Public Use
  Company Number: None

PATIENT
  Age: 8 Year
  Sex: Female
  Weight: 34.02 kg

DRUGS (5)
  1. AXIRON [Concomitant]
     Active Substance: TESTOSTERONE
  2. ANDROGEL [Suspect]
     Active Substance: TESTOSTERONE
  3. FORTESTA [Suspect]
     Active Substance: TESTOSTERONE
  4. BIO T GEL [Suspect]
     Active Substance: TESTOSTERONE
  5. TESTIM [Suspect]
     Active Substance: TESTOSTERONE

REACTIONS (2)
  - Accidental exposure to product by child [None]
  - Precocious puberty [None]

NARRATIVE: CASE EVENT DATE: 20151026
